FAERS Safety Report 4512146-8 (Version None)
Quarter: 2004Q4

REPORT INFORMATION
  Report Type: 
  Country: None (occurrence: None)
  Receive Date: 20041129
  Receipt Date: 20040518
  Transmission Date: 20050328
  Serious: No
  Sender: FDA-Public Use
  Company Number: US-GLAXOSMITHKLINE-A0511290A

PATIENT
  Age: 72 Year
  Sex: Female

DRUGS (6)
  1. LANOXIN [Suspect]
     Indication: ATRIAL FIBRILLATION
     Dosage: .125MG PER DAY
     Route: 048
  2. ACIPHEX [Suspect]
  3. CARDIZEM [Concomitant]
  4. RYTHMOL [Concomitant]
  5. PREVACID [Concomitant]
  6. PRILOSEC [Concomitant]

REACTIONS (3)
  - ASTHENIA [None]
  - DIZZINESS [None]
  - HEAD DISCOMFORT [None]
